FAERS Safety Report 4987078-1 (Version None)
Quarter: 2006Q2

REPORT INFORMATION
  Report Type: 
  Country: None (occurrence: None)
  Receive Date: 20060501
  Receipt Date: 20050519
  Transmission Date: 20061013
  Serious: Yes (Hospitalization)
  Sender: FDA-Public Use
  Company Number: FR-GLAXOSMITHKLINE-B0382108A

PATIENT
  Age: 84 Year
  Sex: Male

DRUGS (5)
  1. ZOPHREN [Suspect]
     Indication: PROPHYLAXIS OF NAUSEA AND VOMITING
     Route: 048
     Dates: start: 20050402, end: 20050402
  2. GLUCOPHAGE [Suspect]
     Indication: DIABETES MELLITUS NON-INSULIN-DEPENDENT
     Dosage: 850MG TWICE PER DAY
     Route: 048
     Dates: end: 20050401
  3. PREVISCAN [Suspect]
     Dosage: 5MG PER DAY
     Route: 048
     Dates: end: 20050401
  4. STILNOX [Suspect]
     Dosage: 1UNIT PER DAY
     Route: 048
     Dates: end: 20050402
  5. XELODA [Suspect]
     Indication: COLON CANCER
     Dosage: 6UNIT PER DAY
     Route: 048
     Dates: start: 20050223, end: 20050329

REACTIONS (2)
  - TOXIC EPIDERMAL NECROLYSIS [None]
  - VOMITING [None]
